FAERS Safety Report 14471568 (Version 1)
Quarter: 2018Q1

REPORT INFORMATION
  Report Type: Spontaneous
  Country: US (occurrence: US)
  Receive Date: 20180131
  Receipt Date: 20180131
  Transmission Date: 20180509
  Serious: No
  Sender: FDA-Public Use
  Company Number: US-BAYER-2018-016624

PATIENT

DRUGS (2)
  1. CITRACAL [Suspect]
     Active Substance: CALCIUM CITRATE
     Dosage: UNK
  2. MIRALAX [Suspect]
     Active Substance: POLYETHYLENE GLYCOL 3350

REACTIONS (4)
  - Product use in unapproved indication [None]
  - Off label use [None]
  - Drug administration error [None]
  - Therapeutic response unexpected [None]
